FAERS Safety Report 6237047-9 (Version None)
Quarter: 2009Q2

REPORT INFORMATION
  Report Type: 
  Country: None (occurrence: None)
  Receive Date: 20090619
  Receipt Date: 20090613
  Transmission Date: 20091009
  Serious: Yes (Other)
  Sender: FDA-Public Use
  Company Number: US-PFIZER INC-2009185240

PATIENT
  Sex: Female
  Weight: 74.842 kg

DRUGS (13)
  1. LYRICA [Suspect]
     Indication: SCIATICA
     Dosage: 75 MG, 2X/DAY
     Dates: start: 20090224, end: 20090317
  2. LYRICA [Suspect]
     Indication: ARTHRALGIA
  3. LYRICA [Suspect]
     Indication: PAIN IN EXTREMITY
  4. HYDROXYZINE HCL [Suspect]
     Indication: RASH
     Dates: start: 20090317
  5. HYDROXYZINE HCL [Suspect]
     Indication: URTICARIA
  6. ZOCOR [Concomitant]
     Dosage: 40 MG, 1X/DAY
     Route: 048
  7. GLUCOPHAGE [Concomitant]
     Dosage: 1000 MG, 2X/DAY
     Route: 048
     Dates: start: 20090302
  8. GLIMEPIRIDE [Concomitant]
     Dosage: 4 MG, 1X/DAY
     Route: 048
  9. COREG [Concomitant]
     Dosage: 25 MG, 2X/DAY
     Route: 048
     Dates: start: 20090206
  10. ACETYLSALICYLIC ACID [Concomitant]
  11. NIACIN [Concomitant]
     Dosage: 500 MG, 1X/DAY
  12. ZESTORETIC [Concomitant]
     Dosage: UNK
  13. ALBUTEROL [Concomitant]
     Dosage: UNK

REACTIONS (16)
  - BLOOD GLUCOSE INCREASED [None]
  - CHILLS [None]
  - DIARRHOEA [None]
  - DYSPHAGIA [None]
  - GASTROENTERITIS [None]
  - GASTROOESOPHAGEAL REFLUX DISEASE [None]
  - HYPERSENSITIVITY [None]
  - HYPOTENSION [None]
  - LIP SWELLING [None]
  - NAUSEA [None]
  - OESOPHAGEAL OEDEMA [None]
  - OESOPHAGITIS [None]
  - PAIN [None]
  - PYREXIA [None]
  - URTICARIA [None]
  - VOMITING [None]
